FAERS Safety Report 6652434-2 (Version None)
Quarter: 2010Q1

REPORT INFORMATION
  Report Type: 
  Country: None (occurrence: None)
  Receive Date: 20100323
  Receipt Date: 20090709
  Transmission Date: 20100710
  Serious: Yes (Hospitalization)
  Sender: FDA-Public Use
  Company Number: 220006N08FRA

PATIENT
  Age: 37 Year
  Sex: Female
  Weight: 60 kg

DRUGS (12)
  1. SAIZEN [Suspect]
     Indication: BLOOD GROWTH HORMONE
     Dosage: 0.1 MG, 1 IN 1 DAYS, SUBCUTANEOUS ; 0.1 MG, 1 IN 1 DAYS, SUBCUTANEOUS
     Route: 058
     Dates: start: 20070820, end: 20080928
  2. SAIZEN [Suspect]
     Indication: BLOOD GROWTH HORMONE
     Dosage: 0.1 MG, 1 IN 1 DAYS, SUBCUTANEOUS ; 0.1 MG, 1 IN 1 DAYS, SUBCUTANEOUS
     Route: 058
     Dates: start: 20041015
  3. HYDROCORTONE [Concomitant]
  4. MAGNE B6 (MAGNESIUM W/VITAMIN B6) [Concomitant]
  5. POTASSIUM CHLORIDE [Concomitant]
  6. LEXOMIL (BROMAZEPAM) [Concomitant]
  7. CITALOPRAM HYDROBROMIDE [Concomitant]
  8. AMITRIPTYLINE HCL [Concomitant]
  9. ANDROCUR 50 (CYPROTERONE ACETATE) [Concomitant]
  10. ESTREVA (ESTRADIOL) [Concomitant]
  11. ATORVASTATIN CALCIUM [Concomitant]
  12. DOSTINEX 0.5 (CABERGOLINE) [Concomitant]

REACTIONS (2)
  - MENINGIOMA [None]
  - NEOPLASM PROGRESSION [None]
